FAERS Safety Report 6157001-5 (Version None)
Quarter: 2009Q2

REPORT INFORMATION
  Report Type: 
  Country: None (occurrence: None)
  Receive Date: 20090416
  Receipt Date: 20090406
  Transmission Date: 20091009
  Serious: Yes (Hospitalization, Other)
  Sender: FDA-Public Use
  Company Number: US-TYCO HEALTHCARE/MALLINCKRODT-T200900773

PATIENT
  Sex: Male
  Weight: 75.283 kg

DRUGS (4)
  1. OPTIMARK [Suspect]
     Indication: ARTHROGRAM
     Dosage: COMBINED W/ OPTIRAY TO MAKE 14 ML, SINGLE
     Route: 014
     Dates: start: 20060126, end: 20060126
  2. OPTIRAY 300 [Suspect]
     Indication: ARTHROGRAM
     Dosage: COMBINED W/ OPTIMARK TO MAKE 14 ML, SINGLE
     Route: 014
     Dates: start: 20060126, end: 20060126
  3. XYLOCAINE [Suspect]
     Indication: ARTHROGRAM
     Dosage: 8 ML (CC), UNK
     Route: 014
     Dates: start: 20060126, end: 20060126
  4. (NOS) BLOOD PRESSURE MEDICATION [Concomitant]
     Indication: BLOOD PRESSURE
     Dosage: UNK
     Route: 048

REACTIONS (9)
  - FEELING COLD [None]
  - INJECTION SITE PAIN [None]
  - OEDEMA PERIPHERAL [None]
  - PROSTATE CANCER RECURRENT [None]
  - RENAL CANCER [None]
  - RENAL IMPAIRMENT [None]
  - SCLERODERMA [None]
  - SKIN DISCOLOURATION [None]
  - WHITE BLOOD CELL COUNT INCREASED [None]
